FAERS Safety Report 5123704-4 (Version None)
Quarter: 2006Q4

REPORT INFORMATION
  Report Type: 
  Country: None (occurrence: None)
  Receive Date: 20061010
  Receipt Date: 20060927
  Transmission Date: 20070319
  Serious: Yes (Hospitalization, Other)
  Sender: FDA-Public Use
  Company Number: US-AMGEN-US195084

PATIENT
  Sex: Female

DRUGS (1)
  1. ENBREL [Suspect]
     Indication: RHEUMATOID ARTHRITIS
     Route: 058
     Dates: start: 19990301

REACTIONS (6)
  - CYSTITIS [None]
  - IMPAIRED HEALING [None]
  - KIDNEY INFECTION [None]
  - NEPHROLITHIASIS [None]
  - PERFORATED ULCER [None]
  - STAPHYLOCOCCAL INFECTION [None]
